FAERS Safety Report 7117172-0 (Version None)
Quarter: 2010Q4

REPORT INFORMATION
  Report Type: 
  Country: None (occurrence: None)
  Receive Date: 20101122
  Receipt Date: 20101109
  Transmission Date: 20110411
  Serious: Yes (Hospitalization)
  Sender: FDA-Public Use
  Company Number: US-MYLANLABS-2010S1020934

PATIENT
  Age: 25 Year
  Sex: Female

DRUGS (1)
  1. VALPROIC ACID [Suspect]
     Indication: SUICIDE ATTEMPT
     Route: 065

REACTIONS (7)
  - CARNITINE DEFICIENCY [None]
  - HYPERAMMONAEMIA [None]
  - HYPERNATRAEMIA [None]
  - HYPOCALCAEMIA [None]
  - HYPOTENSION [None]
  - HYPOTHERMIA [None]
  - INTENTIONAL OVERDOSE [None]
